FAERS Safety Report 4668868-1 (Version None)
Quarter: 2005Q2

REPORT INFORMATION
  Report Type: 
  Country: None (occurrence: None)
  Receive Date: 20050523
  Receipt Date: 20050214
  Transmission Date: 20051028
  Serious: Yes (Hospitalization, Other)
  Sender: FDA-Public Use
  Company Number: US-MERCK-0502USA01889

PATIENT
  Age: 52 Year
  Sex: Female
  Weight: 52 kg

DRUGS (14)
  1. VIOXX [Suspect]
     Indication: RHEUMATOID ARTHRITIS
     Route: 048
     Dates: start: 20010101, end: 20040101
  2. DARVOCET-N 100 [Concomitant]
     Indication: ARTHRITIS
     Route: 065
  3. PROCARDIA XL [Concomitant]
     Indication: RAYNAUD'S PHENOMENON
     Route: 065
     Dates: start: 20030901, end: 20040301
  4. MINOCIN [Concomitant]
     Indication: ARTHRITIS
     Route: 048
  5. RESTORIL [Concomitant]
     Route: 065
  6. FOSAMAX [Concomitant]
     Indication: OSTEOPOROSIS PROPHYLAXIS
     Route: 065
  7. OS-CAL [Concomitant]
     Route: 065
  8. VITAMINS (UNSPECIFIED) [Concomitant]
     Route: 065
  9. ZINC (UNSPECIFIED) [Concomitant]
     Route: 065
  10. FOLIC ACID [Concomitant]
     Route: 065
  11. THYROID [Concomitant]
     Indication: HYPOTHYROIDISM
     Route: 065
  12. PREVACID [Concomitant]
     Indication: GASTROOESOPHAGEAL REFLUX DISEASE
     Route: 065
  13. MOTRIN [Concomitant]
     Indication: ARTHRITIS
     Route: 065
  14. DOXYCYCLINE [Concomitant]
     Indication: ARTHRITIS
     Route: 065

REACTIONS (25)
  - ACCIDENT [None]
  - ANXIETY [None]
  - BENIGN LUNG NEOPLASM [None]
  - BLOOD PRESSURE INCREASED [None]
  - CEREBROVASCULAR ACCIDENT [None]
  - CEREBROVASCULAR DISORDER [None]
  - FALL [None]
  - HEAD INJURY [None]
  - HYPOACUSIS [None]
  - HYPOAESTHESIA [None]
  - JOINT INJURY [None]
  - LACUNAR INFARCTION [None]
  - LUNG NEOPLASM [None]
  - LYMPHADENOPATHY MEDIASTINAL [None]
  - OBLITERATIVE BRONCHIOLITIS [None]
  - PULMONARY EMBOLISM [None]
  - RAYNAUD'S PHENOMENON [None]
  - RHEUMATOID ARTHRITIS [None]
  - SLEEP DISORDER [None]
  - SUBARACHNOID HAEMORRHAGE [None]
  - THROMBOPHLEBITIS SUPERFICIAL [None]
  - TRANSIENT ISCHAEMIC ATTACK [None]
  - VENOUS ANGIOMA OF BRAIN [None]
  - VENOUS STENOSIS [None]
  - VISUAL DISTURBANCE [None]
